FAERS Safety Report 21004321 (Version 1)
Quarter: 2022Q2

REPORT INFORMATION
  Report Type: Other
  Country: CN (occurrence: None)
  Receive Date: 20220624
  Receipt Date: 20220624
  Transmission Date: 20220720
  Serious: Yes (Congenital Anomaly)
  Sender: FDA-Public Use
  Company Number: CN-Merck Healthcare KGaA-9329565

PATIENT
  Sex: Female

DRUGS (2)
  1. CETRORELIX ACETATE [Suspect]
     Active Substance: CETRORELIX ACETATE
     Indication: Controlled ovarian stimulation
     Route: 064
  2. MENOTROPINS [Suspect]
     Active Substance: MENOTROPINS
     Indication: Controlled ovarian stimulation
     Route: 064

REACTIONS (2)
  - Respiratory tract malformation [Unknown]
  - Foetal exposure during pregnancy [Unknown]
